FAERS Safety Report 5500954-6 (Version None)
Quarter: 2007Q4

REPORT INFORMATION
  Report Type: 
  Country: None (occurrence: None)
  Receive Date: 20071029
  Receipt Date: 20071019
  Transmission Date: 20080405
  Serious: Yes (Other)
  Sender: FDA-Public Use
  Company Number: PHBS2007FI17478

PATIENT
  Age: 72 Year
  Sex: Female

DRUGS (4)
  1. EXJADE [Suspect]
     Route: 065
     Dates: end: 20070710
  2. FURESIS [Concomitant]
  3. APURIN [Concomitant]
  4. SPESICOR [Concomitant]

REACTIONS (4)
  - CEREBRAL HAEMORRHAGE [None]
  - FALL [None]
  - HEPATIC ENZYME INCREASED [None]
  - RENAL FUNCTION TEST ABNORMAL [None]
